FAERS Safety Report 16762015 (Version 4)
Quarter: 2019Q4

REPORT INFORMATION
  Report Type: Report from Study
  Country: US (occurrence: US)
  Receive Date: 20190830
  Receipt Date: 20191121
  Transmission Date: 20200122
  Serious: Yes (Hospitalization, Other)
  Sender: FDA-Public Use
  Company Number: US-TAKEDA-2018TUS036059

PATIENT
  Sex: Female

DRUGS (6)
  1. PONATINIB [Suspect]
     Active Substance: PONATINIB
     Dosage: 45 MILLIGRAM, QD
     Route: 048
  2. PREDNISONE. [Concomitant]
     Active Substance: PREDNISONE
     Dosage: UNK
     Route: 065
  3. LOSARTAN POTASSIUM. [Concomitant]
     Active Substance: LOSARTAN POTASSIUM
     Dosage: UNK
     Route: 065
  4. PONATINIB [Suspect]
     Active Substance: PONATINIB
     Indication: ACUTE LYMPHOCYTIC LEUKAEMIA (IN REMISSION)
     Dosage: 45 MILLIGRAM, QD
     Route: 048
     Dates: start: 20181201
  5. PONATINIB [Suspect]
     Active Substance: PONATINIB
     Dosage: 15 MILLIGRAM, QD
     Route: 048
  6. MORPHINE SULFATE. [Concomitant]
     Active Substance: MORPHINE SULFATE
     Dosage: UNK
     Route: 065

REACTIONS (29)
  - Fracture pain [Unknown]
  - Adnexa uteri pain [Unknown]
  - Rash erythematous [Not Recovered/Not Resolved]
  - Skin exfoliation [Not Recovered/Not Resolved]
  - Dehydration [Unknown]
  - Skin hyperpigmentation [Unknown]
  - Decreased appetite [Unknown]
  - Abdominal discomfort [Unknown]
  - Abdominal pain upper [Unknown]
  - Muscle spasms [Unknown]
  - Erythema [Unknown]
  - Headache [Unknown]
  - Kidney infection [Unknown]
  - Skin wrinkling [Recovered/Resolved]
  - Back pain [Unknown]
  - Hyperhidrosis [Unknown]
  - Cough [Unknown]
  - Bone pain [Unknown]
  - Nervous system disorder [Unknown]
  - Pharyngitis [Unknown]
  - Rash maculo-papular [Not Recovered/Not Resolved]
  - Osteoporosis [Unknown]
  - Neuralgia [Unknown]
  - Hypoaesthesia [Unknown]
  - Vomiting [Unknown]
  - Urinary tract infection [Unknown]
  - Psoriasis [Unknown]
  - Infection [Unknown]
  - Pruritus [Unknown]
